FAERS Safety Report 6164486-7 (Version None)
Quarter: 2009Q2

REPORT INFORMATION
  Report Type: 
  Country: None (occurrence: None)
  Receive Date: 20090421
  Receipt Date: 20090410
  Transmission Date: 20091009
  Serious: Yes (Hospitalization)
  Sender: FDA-Public Use
  Company Number: DSA_33505_2009

PATIENT
  Sex: Male

DRUGS (1)
  1. XENAZINE [Suspect]
     Indication: HUNTINGTON'S CHOREA
     Dosage: DF

REACTIONS (4)
  - AGITATION [None]
  - ANGER [None]
  - DYSURIA [None]
  - INSOMNIA [None]
